FAERS Safety Report 9531498 (Version 3)
Quarter: 2013Q4

REPORT INFORMATION
  Report Type: Spontaneous
  Country: JP (occurrence: None)
  Receive Date: 20130916
  Receipt Date: 20131223
  Transmission Date: 20140711
  Serious: Yes (Other)
  Sender: FDA-Public Use
  Company Number: ABR_01105_2013

PATIENT
  Age: 65 Year
  Sex: Male
  Weight: 59.6 kg

DRUGS (1)
  1. GLIADEL [Suspect]
     Indication: MALIGNANT GLIOMA
     Dosage: INTRACEREBRAL
     Dates: start: 20130419, end: 20130419

REACTIONS (7)
  - Brain oedema [None]
  - Condition aggravated [None]
  - Paralysis [None]
  - Headache [None]
  - Vomiting [None]
  - Post procedural complication [None]
  - Hemiplegia [None]
